FAERS Safety Report 21381352 (Version 2)
Quarter: 2022Q4

REPORT INFORMATION
  Report Type: Spontaneous
  Country: SA (occurrence: SA)
  Receive Date: 20220927
  Receipt Date: 20221004
  Transmission Date: 20230113
  Serious: Yes (Life-Threatening, Hospitalization, Other)
  Sender: FDA-Public Use
  Company Number: SA-UCBSA-2022056799

PATIENT
  Age: 19 Year
  Sex: Female

DRUGS (11)
  1. LACOSAMIDE [Interacting]
     Active Substance: LACOSAMIDE
     Indication: Status epilepticus
     Dosage: 200 MILLIGRAM, 2X/DAY (BID)
     Route: 042
  2. LACOSAMIDE [Interacting]
     Active Substance: LACOSAMIDE
     Indication: Off label use
     Dosage: 200 MILLIGRAM DAILY
     Route: 042
  3. KEPPRA [Interacting]
     Active Substance: LEVETIRACETAM
     Indication: Status epilepticus
     Dosage: 1500 MILLIGRAM, 2X/DAY (BID)
     Route: 042
  4. KEPPRA [Interacting]
     Active Substance: LEVETIRACETAM
     Indication: Off label use
  5. PHENYTOIN [Interacting]
     Active Substance: PHENYTOIN
     Indication: Status epilepticus
     Dosage: 100 MILLIGRAM, 3X/DAY (TID)
     Route: 042
  6. PERAMPANEL [Interacting]
     Active Substance: PERAMPANEL
     Indication: Status epilepticus
     Dosage: 6 MILLIGRAM DAILY
     Route: 042
  7. PHENOBARBITAL [Interacting]
     Active Substance: PHENOBARBITAL
     Indication: Status epilepticus
     Dosage: SINGLE DOSE
  8. SODIUM BICARBONATE [Concomitant]
     Active Substance: SODIUM BICARBONATE
     Indication: Product used for unknown indication
     Dosage: UNK
     Route: 042
  9. AMIODARONE [Concomitant]
     Active Substance: AMIODARONE
     Indication: Product used for unknown indication
     Dosage: UNK
  10. LIDOCAINE [Concomitant]
     Active Substance: LIDOCAINE
     Indication: Product used for unknown indication
     Dosage: UNK
  11. PROPOFOL [Concomitant]
     Active Substance: PROPOFOL
     Indication: Product used for unknown indication
     Dosage: UNK

REACTIONS (5)
  - Tachycardia [Recovered/Resolved]
  - Electrocardiogram QT prolonged [Recovered/Resolved]
  - Toxicity to various agents [Recovered/Resolved]
  - Drug interaction [Recovered/Resolved]
  - Off label use [Unknown]
